FAERS Safety Report 8032723-X (Version None)
Quarter: 2012Q1

REPORT INFORMATION
  Report Type: 
  Country: None (occurrence: None)
  Receive Date: 20120110
  Receipt Date: 20111228
  Transmission Date: 20120608
  Serious: Yes (Hospitalization)
  Sender: FDA-Public Use
  Company Number: DE-UCBSA-046870

PATIENT
  Age: 28 Year
  Sex: Female
  Weight: 75 kg

DRUGS (2)
  1. VIMPAT [Suspect]
     Indication: EPILEPSY
     Dosage: SINGLE DOSE 200/300, TWICE DAILY, TOTAL DAILY DOSE 500, (UNITS UNSPECIFIED)
     Route: 048
     Dates: start: 20100101
  2. LAMOTRIGINE [Suspect]
     Indication: EPILEPSY
     Dosage: 300/400 SINGLE DOSE, TWICE DAILY, 700 DAILY DOSE,(UNITS UNSPECIFIED)
     Route: 048
     Dates: start: 20050101

REACTIONS (7)
  - MYOSITIS [None]
  - THYROIDITIS [None]
  - HYPERTHYROIDISM [None]
  - MUSCLE SPASMS [None]
  - MYALGIA [None]
  - PERIPHERAL NERVE PARESIS [None]
  - MYOPATHY [None]
